FAERS Safety Report 12708641 (Version 1)
Quarter: 2016Q3

REPORT INFORMATION
  Report Type: Spontaneous
  Country: IT (occurrence: IT)
  Receive Date: 20160901
  Receipt Date: 20160901
  Transmission Date: 20161109
  Serious: Yes (Other)
  Sender: FDA-Public Use
  Company Number: IT-BRISTOL-MYERS SQUIBB COMPANY-BMS-2016-071338

PATIENT
  Sex: Male

DRUGS (1)
  1. NIVOLUMAB [Suspect]
     Active Substance: NIVOLUMAB
     Indication: ADENOCARCINOMA
     Route: 065

REACTIONS (7)
  - Proteinuria [Unknown]
  - Abdominal pain [Unknown]
  - Pulmonary oedema [Unknown]
  - Generalised oedema [Unknown]
  - Renal disorder [Unknown]
  - Blood creatinine increased [Unknown]
  - Malaise [Unknown]
